FAERS Safety Report 19457126 (Version 1)
Quarter: 2021Q2

REPORT INFORMATION
  Report Type: Report from Study
  Country: US (occurrence: US)
  Receive Date: 20210624
  Receipt Date: 20210624
  Transmission Date: 20210717
  Serious: Yes (Hospitalization, Other)
  Sender: FDA-Public Use
  Company Number: US-GILEAD-2021-0537650

PATIENT
  Sex: Male

DRUGS (1)
  1. AMBRISENTAN [Suspect]
     Active Substance: AMBRISENTAN
     Indication: PRODUCT USED FOR UNKNOWN INDICATION
     Dosage: 10 MG
     Route: 065
     Dates: start: 20190709

REACTIONS (5)
  - Peripheral swelling [Not Recovered/Not Resolved]
  - Right ventricular systolic pressure increased [Unknown]
  - Fluid retention [Not Recovered/Not Resolved]
  - Cardiac failure [Unknown]
  - Swelling [Not Recovered/Not Resolved]
